FAERS Safety Report 5798680-1 (Version None)
Quarter: 2008Q3

REPORT INFORMATION
  Report Type: 
  Country: None (occurrence: None)
  Receive Date: 20080702
  Receipt Date: 20080623
  Transmission Date: 20090109
  Serious: Yes (Hospitalization)
  Sender: FDA-Public Use
  Company Number: CA-ELI_LILLY_AND_COMPANY-CA200709005924

PATIENT
  Sex: Female
  Weight: 77.098 kg

DRUGS (9)
  1. FORTEO [Suspect]
     Indication: OSTEOPOROSIS
     Dosage: 20 UG, DAILY (1/D)
     Route: 058
     Dates: start: 20070402
  2. FORTEO [Suspect]
     Dosage: 20 UG, DAILY (1/D)
     Route: 058
  3. APO-CITALOPRAM [Concomitant]
  4. CLONAZEPAM [Concomitant]
  5. SYNTHROID [Concomitant]
  6. APO-TRIAZIDE [Concomitant]
  7. LOPRESSOR [Concomitant]
  8. MEDROXYPROGESTERONE ACETATE [Concomitant]
  9. CALTRATE + VITAMIN D [Concomitant]

REACTIONS (3)
  - BACK PAIN [None]
  - GROIN PAIN [None]
  - NEPHROLITHIASIS [None]
